FAERS Safety Report 17771570 (Version 4)
Quarter: 2020Q3

REPORT INFORMATION
  Report Type: Spontaneous
  Country: US (occurrence: US)
  Receive Date: 20200512
  Receipt Date: 20200918
  Transmission Date: 20201102
  Serious: Yes (Hospitalization, Other)
  Sender: FDA-Public Use
  Company Number: US-PURDUE PHARMA-USA-2020-0152773

PATIENT
  Sex: Female
  Weight: 85 kg

DRUGS (22)
  1. TENORMIN [Concomitant]
     Active Substance: ATENOLOL
     Indication: PRODUCT USED FOR UNKNOWN INDICATION
     Dosage: 50 MG, 2 TABLETS BY MOUTH DAILY
     Route: 048
  2. MS CONTIN [Suspect]
     Active Substance: MORPHINE SULFATE
     Indication: PRODUCT USED FOR UNKNOWN INDICATION
     Dosage: 15 MG, UNK
     Route: 048
  3. OXYCODONE HCL CR TABLETS (SIMILAR TO NDA 22?272) [Suspect]
     Active Substance: OXYCODONE HYDROCHLORIDE
     Indication: PRODUCT USED FOR UNKNOWN INDICATION
     Dosage: UNKNOWN
     Route: 048
  4. NORCO [Suspect]
     Active Substance: ACETAMINOPHEN\HYDROCODONE BITARTRATE
     Indication: OSTEOARTHRITIS
  5. ZYLOPRIM [Concomitant]
     Active Substance: ALLOPURINOL
     Indication: PRODUCT USED FOR UNKNOWN INDICATION
     Dosage: 100 MG, 2 TABLETS DAILY
     Route: 065
  6. PLAQUENIL                          /00072602/ [Concomitant]
     Active Substance: HYDROXYCHLOROQUINE DIPHOSPHATE
     Indication: PRODUCT USED FOR UNKNOWN INDICATION
     Dosage: 200 MG, DAILY, 2 TABLETS BY MOUTH
     Route: 048
  7. HYDROCODONE BITARTRATE (SIMILAR TO NDA 206627) [Suspect]
     Active Substance: HYDROCODONE BITARTRATE
     Indication: PRODUCT USED FOR UNKNOWN INDICATION
     Dosage: UNK
     Route: 048
  8. TEMOVATE [Concomitant]
     Active Substance: CLOBETASOL PROPIONATE
     Indication: PRODUCT USED FOR UNKNOWN INDICATION
     Dosage: 0.05%, 2 TIMES DAILY, APPLY TO AFFECTED AREA
     Route: 061
  9. MORPHINE SULFATE (SIMILAR TO NDA 19?516) [Suspect]
     Active Substance: MORPHINE SULFATE
     Indication: FIBROMYALGIA
  10. MORPHINE SULFATE (SIMILAR TO NDA 19?516) [Suspect]
     Active Substance: MORPHINE SULFATE
     Indication: OSTEOARTHRITIS
  11. OXYCODONE HCL TABLETS (RHODES 91?490) [Suspect]
     Active Substance: OXYCODONE HYDROCHLORIDE
     Indication: PRODUCT USED FOR UNKNOWN INDICATION
     Dosage: 5 MG, UNK
     Route: 048
  12. ALBUTEROL                          /00139501/ [Concomitant]
     Active Substance: ALBUTEROL
     Indication: PRODUCT USED FOR UNKNOWN INDICATION
     Dosage: 90 MCG, 1?2 PUFFS BY MOUTH 4 TIMES DAILY
     Route: 055
  13. ASPIRIN. [Concomitant]
     Active Substance: ASPIRIN
     Indication: PRODUCT USED FOR UNKNOWN INDICATION
     Dosage: 81 MG, ONCE DAILY WITH MEAL
     Route: 065
  14. MORPHINE SULFATE (SIMILAR TO NDA 19?516) [Suspect]
     Active Substance: MORPHINE SULFATE
     Indication: PAIN MANAGEMENT
     Route: 048
  15. MORPHINE SULFATE EXTENDED?RELEASE TABLETS (RHODES 74?769, 74?862) [Suspect]
     Active Substance: MORPHINE SULFATE
     Indication: ARTHRITIS
     Dosage: 60 MG, Q12H
     Route: 048
  16. HYDROCODONE BITARTRATE AND ACETAMINOPHEN [Suspect]
     Active Substance: ACETAMINOPHEN\HYDROCODONE BITARTRATE
     Indication: PAIN
     Dosage: 330 MG, Q6H
     Route: 048
  17. NORCO [Suspect]
     Active Substance: ACETAMINOPHEN\HYDROCODONE BITARTRATE
     Indication: FIBROMYALGIA
     Dosage: 5?325 MG
     Route: 065
  18. SOMA [Concomitant]
     Active Substance: CARISOPRODOL
     Indication: PRODUCT USED FOR UNKNOWN INDICATION
     Dosage: 350 MG, 1?2 TABLETS BY MOUTH EVERY 8 HOURS
     Route: 048
  19. FUROSEMIDE. [Concomitant]
     Active Substance: FUROSEMIDE
     Indication: PRODUCT USED FOR UNKNOWN INDICATION
     Dosage: 40 MG, 2.5 TAB DAILY
     Route: 065
  20. ROXICODONE [Suspect]
     Active Substance: OXYCODONE HYDROCHLORIDE
     Indication: PRODUCT USED FOR UNKNOWN INDICATION
     Dosage: 5 MG, TABS
     Route: 065
  21. SYNTHROID [Concomitant]
     Active Substance: LEVOTHYROXINE SODIUM
     Indication: PRODUCT USED FOR UNKNOWN INDICATION
     Dosage: 88 MCG, DAILY
     Route: 048
  22. DILAUDID [Suspect]
     Active Substance: HYDROMORPHONE HYDROCHLORIDE
     Indication: PRODUCT USED FOR UNKNOWN INDICATION
     Dosage: UNKNOWN
     Route: 048

REACTIONS (54)
  - Large intestine benign neoplasm [Unknown]
  - Cataract [Unknown]
  - Sleep apnoea syndrome [Unknown]
  - Diverticulum intestinal [Unknown]
  - Lymphadenitis [Unknown]
  - Osteoarthritis [Unknown]
  - Oesophageal motility disorder [Unknown]
  - Arthropathy [Unknown]
  - Osteopenia [Unknown]
  - Arthralgia [Unknown]
  - Chronic kidney disease [Unknown]
  - Cardiac failure congestive [Unknown]
  - Bone disorder [Unknown]
  - Oedema [Unknown]
  - Roux loop conversion [Unknown]
  - Renal disorder [Unknown]
  - Hiatus hernia [Unknown]
  - Myoclonus [Unknown]
  - Depression [Unknown]
  - Gastrointestinal surgery [Unknown]
  - Urinary incontinence [Unknown]
  - Eosinophilic oesophagitis [Unknown]
  - Gastrooesophageal reflux disease [Unknown]
  - Gout [Unknown]
  - Essential hypertension [Unknown]
  - Stress [Unknown]
  - Anxiety [Unknown]
  - Bronchiectasis [Unknown]
  - Arrhythmia [Unknown]
  - Mitral valve disease [Unknown]
  - Irritable bowel syndrome [Unknown]
  - Ureteral disorder [Unknown]
  - Productive cough [Unknown]
  - Insomnia [Unknown]
  - Oesophageal achalasia [Unknown]
  - Cataract operation complication [Unknown]
  - Chondropathy [Unknown]
  - Device failure [Unknown]
  - Temporomandibular joint syndrome [Unknown]
  - Hypertension [Unknown]
  - Weight decreased [Unknown]
  - Bruxism [Unknown]
  - Rheumatic fever [Unknown]
  - Anaemia postoperative [Unknown]
  - Feeding disorder [Unknown]
  - Obesity [Unknown]
  - Oesophageal disorder [Unknown]
  - Gestational hypertension [Unknown]
  - Aphasia [Unknown]
  - Fibromyalgia [Unknown]
  - Knee arthroplasty [Unknown]
  - Hypothyroidism [Unknown]
  - Regurgitation [Unknown]
  - Oesophageal dilatation [Unknown]
